FAERS Safety Report 15072514 (Version 1)
Quarter: 2018Q2

REPORT INFORMATION
  Report Type: Report from Study
  Country: None (occurrence: US)
  Receive Date: 20180626
  Receipt Date: 20180626
  Transmission Date: 20180711
  Serious: Yes (Other)
  Sender: FDA-Public Use
  Company Number: US-ABBVIE-18K-163-2399291-00

PATIENT
  Age: 62 Year
  Sex: Female

DRUGS (1)
  1. HUMIRA [Suspect]
     Active Substance: ADALIMUMAB
     Indication: RHEUMATOID ARTHRITIS
     Route: 058
     Dates: start: 20180518

REACTIONS (6)
  - Wound complication [Recovered/Resolved]
  - Systemic lupus erythematosus rash [Unknown]
  - Rash erythematous [Unknown]
  - Blister [Recovered/Resolved]
  - Abdominal pain upper [Unknown]
  - Skin swelling [Unknown]

NARRATIVE: CASE EVENT DATE: 2018
